FAERS Safety Report 7942968-2 (Version None)
Quarter: 2011Q4

REPORT INFORMATION
  Report Type: 
  Country: None (occurrence: None)
  Receive Date: 20111128
  Receipt Date: 20111121
  Transmission Date: 20120403
  Serious: Yes (Hospitalization, Other)
  Sender: FDA-Public Use
  Company Number: US-MERCK-1109USA01912

PATIENT
  Age: 75 Year
  Sex: Female
  Weight: 62 kg

DRUGS (6)
  1. FOSAMAX [Suspect]
     Indication: OSTEOPOROSIS
     Route: 048
     Dates: start: 19980409, end: 20040504
  2. FOSAMAX [Suspect]
     Route: 048
     Dates: start: 20090811, end: 20100630
  3. FOSAMAX PLUS D [Suspect]
     Indication: OSTEOPOROSIS
     Route: 048
     Dates: start: 20061115, end: 20090526
  4. FOSAMAX [Suspect]
     Route: 048
     Dates: start: 20040628, end: 20080418
  5. ALENDRONATE SODIUM [Suspect]
     Indication: OSTEOPOROSIS
     Route: 048
     Dates: start: 20090804, end: 20100101
  6. LIPITOR [Concomitant]
     Route: 065

REACTIONS (29)
  - BREAST CANCER [None]
  - TRICUSPID VALVE INCOMPETENCE [None]
  - CEREBRAL ARTERIOSCLEROSIS [None]
  - CORONARY ARTERY DISEASE [None]
  - STRESS URINARY INCONTINENCE [None]
  - ESSENTIAL HYPERTENSION [None]
  - ATAXIA [None]
  - BUNDLE BRANCH BLOCK RIGHT [None]
  - GLUCOSE TOLERANCE IMPAIRED [None]
  - OSTEOPENIA [None]
  - DYSPEPSIA [None]
  - GLAUCOMA [None]
  - COLONIC POLYP [None]
  - HYPERTENSIVE HEART DISEASE [None]
  - FEMUR FRACTURE [None]
  - MITRAL VALVE INCOMPETENCE [None]
  - INTERVERTEBRAL DISC DEGENERATION [None]
  - CERVICAL SPINAL STENOSIS [None]
  - AORTIC VALVE INCOMPETENCE [None]
  - CERUMEN IMPACTION [None]
  - ARTHRALGIA [None]
  - LEFT VENTRICULAR HYPERTROPHY [None]
  - AORTIC ARTERIOSCLEROSIS [None]
  - BLOOD CHOLESTEROL INCREASED [None]
  - GASTROOESOPHAGEAL REFLUX DISEASE [None]
  - PAIN IN EXTREMITY [None]
  - COUGH [None]
  - THYROID NEOPLASM [None]
  - GOITRE [None]
